FAERS Safety Report 6204790-7 (Version None)
Quarter: 2009Q2

REPORT INFORMATION
  Report Type: 
  Country: None (occurrence: None)
  Receive Date: 20090527
  Receipt Date: 20090515
  Transmission Date: 20091009
  Serious: Yes (Death, Hospitalization)
  Sender: FDA-Public Use
  Company Number: US-PFIZER INC-2009172290

PATIENT
  Sex: Female
  Weight: 82.3 kg

DRUGS (27)
  1. SUNITINIB MALATE [Suspect]
     Indication: BREAST CANCER METASTATIC
     Dosage: 37.5 MG, 1X/DAY
     Route: 048
     Dates: start: 20081028, end: 20090217
  2. PACLITAXEL [Suspect]
     Indication: BREAST CANCER METASTATIC
     Dosage: 65MG/M2, WEEKLY 3 OF 4 WEEKS, 116MG, DAILY
     Route: 042
     Dates: start: 20081028, end: 20090217
  3. EFFEXOR XR [Concomitant]
     Dosage: 75 MG, 1X/DAY
     Route: 048
     Dates: start: 20080501
  4. DOCUSATE SODIUM [Concomitant]
     Dosage: 5 MG, 1-2 DAILY PRN
     Route: 048
     Dates: start: 20080101
  5. IBUPROFEN [Concomitant]
     Dosage: 600 MG, Q 4-6 HR, PRN
     Route: 048
     Dates: start: 20040117
  6. AMBIEN [Concomitant]
     Dosage: 10 MG, PRN
     Route: 048
     Dates: start: 20080401
  7. HYDROCHLOROTHIAZIDE [Concomitant]
     Dosage: 25 MG, PRN, DAILY
     Route: 048
     Dates: start: 20080819
  8. ZOMETA [Concomitant]
     Dosage: 4 MG, ONCE A MONTH, DOSE TODAY 03FEB2009
     Route: 042
     Dates: start: 20080819
  9. CALCIUM [Concomitant]
     Dosage: 600 MG, 2X/DAY
     Route: 048
     Dates: start: 20080819
  10. VITAMIN D [Concomitant]
     Dosage: 200 MG, 2X/DAY
     Route: 048
     Dates: start: 20080819
  11. FISH OIL [Concomitant]
     Dosage: 1000 MG, 1X/DAY
     Route: 048
     Dates: start: 20080301
  12. VITAMIN E [Concomitant]
     Dosage: UNK
     Route: 048
     Dates: start: 20080301
  13. ASCORBIC ACID [Concomitant]
     Dosage: 500 MG, 1X/DAY
     Route: 048
     Dates: start: 20080801
  14. VITAMIN B-12 [Concomitant]
     Dosage: 250 MG, 1X/DAY
     Route: 048
     Dates: start: 20080301
  15. BENADRYL [Concomitant]
     Dosage: 25 MG, Q4-6H,PRN
     Dates: start: 19980101
  16. LOTRISONE [Concomitant]
     Dosage: TOPICAL CREAM TO AFFECTED AREAS BID PRN
  17. LORAZEPAM [Concomitant]
     Indication: NAUSEA
     Dosage: 1 MG, Q6H PRN
     Route: 048
     Dates: start: 20081111
  18. PROCHLORPERAZINE [Concomitant]
     Indication: NAUSEA
     Dosage: 10 MG, Q6H PRN
     Route: 048
     Dates: start: 20081111
  19. MAGIC MOUTHWASH [Concomitant]
     Dosage: 5CC 4-5X/DAY
     Route: 048
     Dates: start: 20081120
  20. HYDROCODONE [Concomitant]
     Indication: PAIN
     Dosage: 5.500 Q 4-6H PRN
     Route: 048
     Dates: end: 20090212
  21. SODIUM CHLORIDE [Concomitant]
     Dosage: MOUTH RINSES, PRN
     Dates: start: 20081216
  22. GELCLAIR [Concomitant]
     Dosage: TOPICAL TO MOUTH SORES, PRN
     Dates: start: 20081216
  23. ZYRTEC [Concomitant]
     Indication: HYPERSENSITIVITY
     Dosage: ONE DAILY PRN
     Route: 048
     Dates: start: 20040101
  24. PROMETHAZINE HYDROCHLORIDE [Concomitant]
     Indication: NAUSEA
     Dosage: 25 MG, PRN
     Route: 048
     Dates: start: 20090126
  25. ZOFRAN [Concomitant]
     Dosage: 8 MG, BID, PRN
     Route: 048
     Dates: start: 20090127
  26. MORPHINE [Concomitant]
     Indication: PAIN
     Dosage: 15 MG, 2X/DAY
     Dates: start: 20090212
  27. HYDROMORPHONE [Concomitant]
     Indication: PAIN
     Dosage: 2 MG, Q4-6H, PRN
     Route: 048
     Dates: start: 20090212

REACTIONS (7)
  - ACUTE RESPIRATORY FAILURE [None]
  - BREAST CANCER FEMALE [None]
  - DISEASE PROGRESSION [None]
  - GENERALISED OEDEMA [None]
  - HYPOKALAEMIA [None]
  - PANCYTOPENIA [None]
  - PLEURAL EFFUSION [None]
